FAERS Safety Report 19257658 (Version 2)
Quarter: 2021Q2

REPORT INFORMATION
  Report Type: Other
  Country: DE (occurrence: DE)
  Receive Date: 20210514
  Receipt Date: 20210601
  Transmission Date: 20210717
  Serious: Yes (Hospitalization, Other)
  Sender: FDA-Public Use
  Company Number: DE-ROCHE-2826769

PATIENT
  Age: 53 Year
  Sex: Female

DRUGS (13)
  1. COLLAGEN [Concomitant]
     Active Substance: COLLAGEN
  2. METHYLSULFONYLMETHANE [Concomitant]
     Active Substance: DIMETHYL SULFONE
  3. PREGABALIN. [Concomitant]
     Active Substance: PREGABALIN
     Indication: DYSAESTHESIA
     Dosage: 2?0?1
     Route: 048
  4. PANTOPRAZOL [Concomitant]
     Active Substance: PANTOPRAZOLE SODIUM
     Route: 048
  5. DEKRISTOL [Concomitant]
     Active Substance: CHOLECALCIFEROL
  6. TORASEMIDE [Concomitant]
     Active Substance: TORSEMIDE
     Indication: OEDEMA
     Dosage: IRREGULAR FREQUENCY
  7. POTASSIUM [Concomitant]
     Active Substance: POTASSIUM
  8. HORSETAIL [Concomitant]
     Active Substance: HERBALS
  9. SATRALIZUMAB. [Suspect]
     Active Substance: SATRALIZUMAB
     Indication: NEUROMYELITIS OPTICA SPECTRUM DISORDER
     Dosage: NOT REGULAR
     Route: 058
     Dates: start: 20201217
  10. KALIUM VERLA [Concomitant]
     Active Substance: POTASSIUM CITRATE
     Route: 048
  11. CALCIUM [Concomitant]
     Active Substance: CALCIUM
  12. CARBAMAZEPINE. [Concomitant]
     Active Substance: CARBAMAZEPINE
     Indication: DYSAESTHESIA
     Dosage: 2?0?1
     Route: 048
  13. ARTICHOKE. [Concomitant]
     Active Substance: ARTICHOKE

REACTIONS (4)
  - Thoracic vertebral fracture [Unknown]
  - Hypoaesthesia [Recovered/Resolved]
  - Chest pain [Recovered/Resolved]
  - Pain in extremity [Recovered/Resolved]

NARRATIVE: CASE EVENT DATE: 202101
